FAERS Safety Report 25450931 (Version 1)
Quarter: 2025Q2

REPORT INFORMATION
  Report Type: Spontaneous
  Country: US (occurrence: None)
  Receive Date: 20250618
  Receipt Date: 20250618
  Transmission Date: 20250717
  Serious: Yes (Other)
  Sender: FDA-CTU
  Company Number: None

PATIENT
  Age: 30 Year
  Sex: Female
  Weight: 83.25 kg

DRUGS (6)
  1. TIRZEPATIDE [Suspect]
     Active Substance: TIRZEPATIDE
     Indication: Weight decreased
     Route: 058
     Dates: start: 20250615
  2. LAMOTRIGINE [Concomitant]
     Active Substance: LAMOTRIGINE
  3. CENOMABATE [Concomitant]
  4. NORETHINDRONE [Concomitant]
     Active Substance: NORETHINDRONE
  5. ADDERALL [Concomitant]
     Active Substance: AMPHETAMINE ASPARTATE\AMPHETAMINE SULFATE\DEXTROAMPHETAMINE SACCHARATE\DEXTROAMPHETAMINE SULFATE
  6. FOLIC ACID [Concomitant]
     Active Substance: FOLIC ACID

REACTIONS (6)
  - Contusion [None]
  - Lethargy [None]
  - Pain [None]
  - Sunburn [None]
  - Disturbance in attention [None]
  - Sleep disorder [None]

NARRATIVE: CASE EVENT DATE: 20250616
